FAERS Safety Report 6896778-8 (Version None)
Quarter: 2010Q3

REPORT INFORMATION
  Report Type: 
  Country: None (occurrence: None)
  Receive Date: 20100802
  Receipt Date: 20070510
  Transmission Date: 20110219
  Serious: Yes (Hospitalization, Other)
  Sender: FDA-Public Use
  Company Number: US-PFIZER INC-2006128131

PATIENT
  Sex: Male
  Weight: 81.6 kg

DRUGS (9)
  1. LYRICA [Suspect]
     Indication: NEURALGIA
     Route: 048
     Dates: start: 20060929, end: 20061002
  2. NEURONTIN [Suspect]
     Indication: NEURALGIA
     Dates: start: 20061002, end: 20061008
  3. DURAGESIC-100 [Concomitant]
  4. OXYCONTIN [Concomitant]
  5. PERCOCET [Concomitant]
  6. ROBAXIN [Concomitant]
  7. VALIUM [Concomitant]
  8. TAMSULOSIN HCL [Concomitant]
  9. HYDROCHLOROTHIAZIDE [Concomitant]

REACTIONS (4)
  - HYPERSENSITIVITY [None]
  - MALAISE [None]
  - PYREXIA [None]
  - RASH [None]
